FAERS Safety Report 4285312-7 (Version None)
Quarter: 2004Q1

REPORT INFORMATION
  Report Type: 
  Country: None (occurrence: None)
  Receive Date: 20040204
  Receipt Date: 20040115
  Transmission Date: 20041129
  Serious: Yes (Hospitalization, Other)
  Sender: FDA-Public Use
  Company Number: PHBS2004JP00899

PATIENT
  Age: 25 Year
  Sex: Male

DRUGS (3)
  1. ANAFRANIL [Suspect]
     Indication: DEPRESSION
     Dosage: 2000 MG/D
     Route: 048
  2. LUDIOMIL [Suspect]
     Dosage: 2000 MG/D
     Route: 048
  3. AMOXAPINE [Suspect]
     Dosage: 1250 MG/D
     Route: 048

REACTIONS (4)
  - DEPRESSED LEVEL OF CONSCIOUSNESS [None]
  - HEART RATE INCREASED [None]
  - OVERDOSE [None]
  - STATUS EPILEPTICUS [None]
